FAERS Safety Report 4285832-5 (Version None)
Quarter: 2004Q1

REPORT INFORMATION
  Report Type: 
  Country: None (occurrence: None)
  Receive Date: 20040203
  Receipt Date: 20040120
  Transmission Date: 20041129
  Serious: Yes (Hospitalization)
  Sender: FDA-Public Use
  Company Number: 12480539

PATIENT
  Age: 61 Year
  Sex: Female

DRUGS (7)
  1. STAVUDINE [Suspect]
     Dosage: 40 MILLIGRAM, 2/1 DAY
  2. INDINAVIR [Suspect]
     Dosage: 800 MILLIGRAM, 3/1 DAY
  3. LAMIVUDINE [Suspect]
     Dosage: 150 MILLIGRAM, 2/1 DAY
  4. RITONAVIR [Suspect]
     Dosage: 200 MILLIGRAM, 2/1 DAY
  5. DIGOXIN [Suspect]
     Dosage: .25 MILLIGRAM, 1 DAY
  6. COUMADIN [Concomitant]
  7. AEROSOL PENTAMIDINE (PENTAMIDINE ISETHIONATE) [Concomitant]

REACTIONS (4)
  - BLOOD BILIRUBIN UNCONJUGATED INCREASED [None]
  - NAUSEA [None]
  - THERAPEUTIC AGENT TOXICITY [None]
  - VOMITING [None]
